FAERS Safety Report 25950400 (Version 2)
Quarter: 2025Q4

REPORT INFORMATION
  Report Type: Spontaneous
  Country: TW (occurrence: TW)
  Receive Date: 20251023
  Receipt Date: 20251023
  Transmission Date: 20260117
  Serious: Yes (Other)
  Sender: RANBAXY
  Company Number: TW-SUN PHARMACEUTICAL INDUSTRIES LTD-2025R1-532507

PATIENT
  Age: 34 Year
  Sex: Female

DRUGS (5)
  1. INDOMETHACIN [Suspect]
     Active Substance: INDOMETHACIN
     Indication: Tocolysis
     Dosage: UNK
     Route: 065
     Dates: start: 20241019, end: 20241028
  2. NIFEDIPINE [Suspect]
     Active Substance: NIFEDIPINE
     Indication: Tocolysis
     Dosage: UNK
     Route: 065
     Dates: start: 20241019, end: 20250124
  3. MAGNESIUM SULFATE [Suspect]
     Active Substance: MAGNESIUM SULFATE
     Indication: Nervous system disorder prophylaxis
     Dosage: UNK
     Route: 065
  4. DEXAMETHASONE [Suspect]
     Active Substance: DEXAMETHASONE
     Indication: Steroid therapy
     Dosage: 6 MILLIGRAM, BID
     Route: 030
  5. RITODRINE [Concomitant]
     Active Substance: RITODRINE
     Indication: Tocolysis
     Dosage: 50 MG/AMP, 3 AMPS DAILY, EVERY 8 HOURS
     Route: 065

REACTIONS (4)
  - Oligohydramnios [Unknown]
  - Maternal exposure during pregnancy [Unknown]
  - Off label use [Unknown]
  - Premature delivery [Unknown]
